FAERS Safety Report 15628541 (Version 1)
Quarter: 2018Q4

REPORT INFORMATION
  Report Type: Spontaneous
  Country: FR (occurrence: FR)
  Receive Date: 20181116
  Receipt Date: 20181116
  Transmission Date: 20190205
  Serious: Yes (Other)
  Sender: FDA-Public Use
  Company Number: FR-009507513-1811FRA005294

PATIENT
  Age: 51 Year
  Sex: Female

DRUGS (1)
  1. DIPROSTENE [Suspect]
     Active Substance: BETAMETHASONE DIPROPIONATE\BETAMETHASONE SODIUM PHOSPHATE
     Dosage: UNK
     Dates: start: 20160524, end: 20160524

REACTIONS (13)
  - Pain in extremity [Not Recovered/Not Resolved]
  - Swelling face [Unknown]
  - Dystonia [Unknown]
  - Eye pain [Not Recovered/Not Resolved]
  - Diarrhoea [Unknown]
  - Myoclonus [Unknown]
  - Eye haematoma [Not Recovered/Not Resolved]
  - Facial pain [Not Recovered/Not Resolved]
  - Torticollis [Not Recovered/Not Resolved]
  - Headache [Not Recovered/Not Resolved]
  - Off label use [Unknown]
  - Gait disturbance [Not Recovered/Not Resolved]
  - Chest pain [Unknown]

NARRATIVE: CASE EVENT DATE: 2016
